FAERS Safety Report 7495236-X (Version None)
Quarter: 2011Q2

REPORT INFORMATION
  Report Type: 
  Country: None (occurrence: None)
  Receive Date: 20110522
  Receipt Date: 20110509
  Transmission Date: 20111010
  Serious: Yes (Hospitalization)
  Sender: FDA-Public Use
  Company Number: US-ELI_LILLY_AND_COMPANY-US201102002961

PATIENT
  Sex: Female

DRUGS (3)
  1. FORTEO [Suspect]
     Dosage: 20 UG, QD
     Route: 058
  2. FORTEO [Suspect]
     Dosage: 20 UG, QD
     Route: 058
  3. FORTEO [Suspect]
     Indication: OSTEOPOROSIS
     Dosage: 20 UG, QD
     Route: 058
     Dates: start: 20101029

REACTIONS (11)
  - FALL [None]
  - ARTHRALGIA [None]
  - HEAD INJURY [None]
  - ASTHENIA [None]
  - ARTHRITIS [None]
  - SPINAL OSTEOARTHRITIS [None]
  - BONE PAIN [None]
  - MOVEMENT DISORDER [None]
  - NASOPHARYNGITIS [None]
  - SOMNOLENCE [None]
  - SLEEP DISORDER DUE TO A GENERAL MEDICAL CONDITION [None]
